FAERS Safety Report 16139406 (Version 1)
Quarter: 2019Q2

REPORT INFORMATION
  Report Type: Spontaneous
  Country: FR (occurrence: FR)
  Receive Date: 20190401
  Receipt Date: 20190401
  Transmission Date: 20190711
  Serious: Yes (Other)
  Sender: FDA-Public Use
  Company Number: FR-AUROBINDO-AUR-APL-2019-017063

PATIENT

DRUGS (7)
  1. CEFIXIME. [Suspect]
     Active Substance: CEFIXIME
     Indication: URINARY TRACT INFECTION
     Dosage: 200 MILLIGRAM, BID
     Route: 048
     Dates: start: 20180823, end: 20180828
  2. NORFLOXACIN [Suspect]
     Active Substance: NORFLOXACIN
     Indication: URINARY TRACT INFECTION
     Dosage: 400 MILLIGRAM, BID
     Route: 048
     Dates: start: 20180821, end: 20180823
  3. BRIGATINIB [Suspect]
     Active Substance: BRIGATINIB
     Dosage: 120 MILLIGRAM, QD
     Route: 048
     Dates: start: 20180720, end: 20180817
  4. BRIGATINIB [Suspect]
     Active Substance: BRIGATINIB
     Dosage: 180 MILLIGRAM, QD
     Route: 048
     Dates: start: 20180628, end: 20180710
  5. COUMADINE [Concomitant]
     Active Substance: WARFARIN SODIUM
     Indication: THROMBOCYTOPENIA
     Dosage: 6 MILLIGRAM, QD
     Route: 048
     Dates: start: 2015, end: 20180824
  6. BRIGATINIB [Suspect]
     Active Substance: BRIGATINIB
     Indication: NON-SMALL CELL LUNG CANCER
     Dosage: 90 MILLIGRAM, QD
     Route: 048
     Dates: start: 20180621, end: 20180627
  7. COUMADINE [Concomitant]
     Active Substance: WARFARIN SODIUM
     Indication: PULMONARY EMBOLISM
     Dosage: UNK
     Route: 065
     Dates: start: 20180918

REACTIONS (3)
  - Thrombocytopenia [Recovered/Resolved]
  - Neoplasm progression [Unknown]
  - Urinary tract infection [Recovered/Resolved]

NARRATIVE: CASE EVENT DATE: 20180816
